FAERS Safety Report 19151381 (Version 1)
Quarter: 2021Q2

REPORT INFORMATION
  Report Type: Spontaneous
  Country: BR (occurrence: BR)
  Receive Date: 20210419
  Receipt Date: 20210419
  Transmission Date: 20210717
  Serious: Yes (Hospitalization, Other)
  Sender: FDA-Public Use
  Company Number: BR-NOVOPROD-804037

PATIENT
  Age: 84 Year
  Sex: Male
  Weight: 75 kg

DRUGS (8)
  1. ECASIL [ACETYLSALICYLIC ACID] [Concomitant]
     Active Substance: ASPIRIN
     Dosage: UNK(ONE TABLET)
     Route: 065
  2. XULTOPHY 100/3.6 [Suspect]
     Active Substance: INSULIN DEGLUDEC\LIRAGLUTIDE
     Indication: TYPE 2 DIABETES MELLITUS
     Dosage: APPLY 10 UNITS IN MORNING AND ACCORDING TO THE FASTING BLOOD GLUCOSE AVERAGE BETWEEN 90 110 ? KEEP T
     Route: 058
  3. GLYXAMBI [Concomitant]
     Active Substance: EMPAGLIFLOZIN\LINAGLIPTIN
     Dosage: UNK (ONE TABLET)
     Route: 065
  4. AAS [Concomitant]
     Active Substance: ASPIRIN
     Dosage: UNK
     Route: 065
  5. FIASP [Suspect]
     Active Substance: INSULIN ASPART
     Indication: TYPE 2 DIABETES MELLITUS
     Dosage: APPLY IF BLOOD GLUCOSE IS ABOVE 200 ? 2 U AT INTERVALS OF AT LEAST 4 HOURS
     Route: 058
  6. JARDIANCE [Concomitant]
     Active Substance: EMPAGLIFLOZIN
     Dosage: UNK
     Route: 065
  7. FUROSEMIDE. [Concomitant]
     Active Substance: FUROSEMIDE
     Dosage: UNK
     Route: 065
  8. METFORMIN [Concomitant]
     Active Substance: METFORMIN HYDROCHLORIDE
     Dosage: 500MG
     Route: 065

REACTIONS (1)
  - Atrioventricular block complete [Unknown]
